FAERS Safety Report 13987421 (Version 1)
Quarter: 2017Q3

REPORT INFORMATION
  Report Type: Spontaneous
  Country: CN (occurrence: CN)
  Receive Date: 20170919
  Receipt Date: 20170919
  Transmission Date: 20171128
  Serious: Yes (Other)
  Sender: FDA-Public Use
  Company Number: CN-ASTRAZENECA-2017SE95230

PATIENT
  Age: 31668 Day
  Sex: Male
  Weight: 55 kg

DRUGS (2)
  1. BUDESONIDE. [Suspect]
     Active Substance: BUDESONIDE
     Indication: RESPIRATORY DISORDER
     Route: 055
     Dates: start: 20170501, end: 20170508
  2. TERBUTALINE [Concomitant]
     Active Substance: TERBUTALINE
     Indication: RESPIRATORY DISORDER
     Dates: start: 20170501, end: 20170508

REACTIONS (1)
  - Leukoderma [Recovering/Resolving]

NARRATIVE: CASE EVENT DATE: 20170508
